FAERS Safety Report 4902901-4 (Version None)
Quarter: 2006Q1

REPORT INFORMATION
  Report Type: 
  Country: None (occurrence: None)
  Receive Date: 20060207
  Receipt Date: 20050519
  Transmission Date: 20060701
  Serious: Yes (Life-Threatening, Hospitalization, Other)
  Sender: FDA-Public Use
  Company Number: US-GILEAD-2005-0008365

PATIENT
  Sex: Male
  Weight: 80.358 kg

DRUGS (11)
  1. TRUVADA [Suspect]
     Indication: HIV INFECTION
     Route: 048
     Dates: start: 20050504, end: 20050518
  2. SUSTIVA [Concomitant]
     Indication: HIV INFECTION
     Dates: start: 20050504, end: 20050518
  3. COMBIVIR [Concomitant]
     Indication: HIV INFECTION
     Dates: end: 20050504
  4. DITROPAN XL [Concomitant]
     Indication: BENIGN PROSTATIC HYPERPLASIA
     Route: 048
     Dates: start: 20000101
  5. FLOMAX [Concomitant]
     Indication: BENIGN PROSTATIC HYPERPLASIA
     Route: 048
     Dates: start: 20000101
  6. TRICOR [Concomitant]
     Indication: HYPERLIPIDAEMIA
     Route: 048
     Dates: start: 20000101
  7. PROVIGIL [Concomitant]
     Indication: DEPRESSION
     Route: 048
     Dates: start: 20040101
  8. VALIUM [Concomitant]
     Indication: DEPRESSION
     Route: 048
     Dates: start: 19970101
  9. SEROQUEL [Concomitant]
     Indication: DEPRESSION
     Route: 048
     Dates: start: 19970101
  10. OXANDRIN [Concomitant]
     Indication: LIPOATROPHY
     Route: 048
     Dates: start: 20050504
  11. VIAGRA [Concomitant]
     Indication: ERECTILE DYSFUNCTION
     Route: 048
     Dates: start: 20030101

REACTIONS (6)
  - COMPUTERISED TOMOGRAM ABNORMAL [None]
  - HAEMODIALYSIS [None]
  - NEPHRITIS INTERSTITIAL [None]
  - RENAL FAILURE ACUTE [None]
  - RENAL TUBULAR NECROSIS [None]
  - URINARY TRACT INFECTION [None]
